FAERS Safety Report 5663765-7 (Version None)
Quarter: 2008Q1

REPORT INFORMATION
  Report Type: 
  Country: None (occurrence: None)
  Receive Date: 20080311
  Receipt Date: 20080224
  Transmission Date: 20080703
  Serious: Yes (Life-Threatening, Hospitalization, Disabling)
  Sender: FDA-Public Use
  Company Number: OMRIX 10006

PATIENT
  Sex: Female

DRUGS (1)
  1. EVICEL [Suspect]
     Indication: CAROTID ENDARTERECTOMY
     Dosage: SPRAY
     Dates: start: 20080208

REACTIONS (4)
  - CEREBROVASCULAR ACCIDENT [None]
  - HYPOPERFUSION [None]
  - PHARMACEUTICAL PRODUCT COMPLAINT [None]
  - PROCEDURAL COMPLICATION [None]
